FAERS Safety Report 24758343 (Version 1)
Quarter: 2024Q4

REPORT INFORMATION
  Report Type: Spontaneous
  Country: US (occurrence: US)
  Receive Date: 20241220
  Receipt Date: 20241220
  Transmission Date: 20250114
  Serious: Yes (Other)
  Sender: Hindustan Unilever
  Company Number: US-Hindustan Unilever Limited-2167481

PATIENT
  Age: 37 Year
  Sex: Female

DRUGS (1)
  1. COSMETICS [Suspect]
     Active Substance: COSMETICS
     Dates: start: 20241120

REACTIONS (2)
  - Alopecia [Unknown]
  - Alopecia [Unknown]

NARRATIVE: CASE EVENT DATE: 20241122
